FAERS Safety Report 5838974-4 (Version None)
Quarter: 2008Q3

REPORT INFORMATION
  Report Type: 
  Country: None (occurrence: None)
  Receive Date: 20080808
  Receipt Date: 20080721
  Transmission Date: 20090109
  Serious: No
  Sender: FDA-Public Use
  Company Number: US-BOEHRINGER INGELHEIM GMBH, GERMANY-2008-BP-11418BP

PATIENT
  Age: 81 Year
  Sex: Male

DRUGS (8)
  1. MIRAPEX [Suspect]
     Indication: RESTLESS LEGS SYNDROME
     Route: 048
     Dates: start: 20030101
  2. SPIRIVA [Suspect]
     Indication: DYSPNOEA
     Route: 055
     Dates: start: 20060101
  3. SPIRIVA [Suspect]
     Indication: LUNG DISORDER
  4. PLAVIX [Concomitant]
     Indication: ANEURYSM
  5. SIMVASTATIN [Concomitant]
     Indication: BLOOD CHOLESTEROL
  6. ZYRTEC [Concomitant]
     Indication: HYPERSENSITIVITY
  7. ASPIRIN [Concomitant]
     Indication: CARDIAC DISORDER
  8. SILVER CENTRUM [Concomitant]
     Indication: VITAMIN SUPPLEMENTATION

REACTIONS (1)
  - VISION BLURRED [None]
